FAERS Safety Report 21142217 (Version 1)
Quarter: 2022Q3

REPORT INFORMATION
  Report Type: Spontaneous
  Country: US (occurrence: None)
  Receive Date: 20220727
  Receipt Date: 20220727
  Transmission Date: 20221027
  Serious: Yes (Disabling)
  Sender: FDA-Public Use
  Company Number: None

PATIENT
  Age: 75 Year
  Sex: Male
  Weight: 54 kg

DRUGS (12)
  1. CITROMA [Suspect]
     Active Substance: MAGNESIUM CITRATE
     Indication: Constipation
     Dosage: OTHER QUANTITY : 1 OZ;?FREQUENCY : AT BEDTIME;?
     Route: 048
     Dates: start: 20220201, end: 20220215
  2. OXYCODONE [Concomitant]
     Active Substance: OXYCODONE
  3. TRAMADOL [Concomitant]
     Active Substance: TRAMADOL
  4. AMLODIPINE [Concomitant]
     Active Substance: AMLODIPINE BESYLATE
  5. mul vit. [Concomitant]
  6. MIRALAX [Concomitant]
     Active Substance: POLYETHYLENE GLYCOL 3350
  7. MAGNESIUM [Concomitant]
     Active Substance: MAGNESIUM
  8. VITAMIN C [Concomitant]
     Active Substance: ASCORBIC ACID
  9. ZINC [Concomitant]
     Active Substance: ZINC
  10. VITAMIN E [Concomitant]
     Active Substance: .ALPHA.-TOCOPHEROL
  11. ruiten [Concomitant]
  12. glycosimine [Concomitant]

REACTIONS (2)
  - Constipation [None]
  - Muscle spasms [None]

NARRATIVE: CASE EVENT DATE: 20220320
